FAERS Safety Report 10483820 (Version 2)
Quarter: 2014Q4

REPORT INFORMATION
  Report Type: Spontaneous
  Country: JP (occurrence: JP)
  Receive Date: 20140930
  Receipt Date: 20141010
  Transmission Date: 20150528
  Serious: Yes (Death)
  Sender: FDA-Public Use
  Company Number: JP-MALLINCKRODT-T201403586

PATIENT
  Age: 49 Year
  Sex: Female
  Weight: 58 kg

DRUGS (11)
  1. CALONAL [Concomitant]
     Active Substance: ACETAMINOPHEN
     Dosage: 400 MG, PRN
     Route: 048
     Dates: start: 20140317, end: 20140516
  2. VENA                               /00000402/ [Concomitant]
     Dosage: 50 MG, UNK
     Route: 048
     Dates: start: 20140320, end: 20140327
  3. PACLITAXEL. [Concomitant]
     Active Substance: PACLITAXEL
     Dosage: 120 MG, UNK
     Route: 051
     Dates: start: 20140320, end: 20140320
  4. ALBUMIN TANNATE [Concomitant]
     Active Substance: ALBUMIN BOVINE\TANNIC ACID
     Dosage: 3 G, UNK
     Route: 048
     Dates: start: 20140308, end: 20140319
  5. DEXART [Concomitant]
     Active Substance: DEXAMETHASONE SODIUM PHOSPHATE
     Dosage: 6.6 MG, UNK
     Route: 051
     Dates: start: 20140320, end: 20140327
  6. OXINORM                            /00045603/ [Concomitant]
     Dosage: 5 MG, PRN
     Route: 048
     Dates: start: 20140614, end: 20140616
  7. METHADONE [Suspect]
     Active Substance: METHADONE HYDROCHLORIDE
     Indication: CANCER PAIN
     Dosage: 5 MG, (15 MG DAILY DOSE)
     Route: 048
     Dates: start: 20140317, end: 20140705
  8. WARFARIN [Concomitant]
     Active Substance: WARFARIN
     Dosage: 1.5 MG, UNK
     Route: 048
     Dates: start: 20140312, end: 20140628
  9. NOVAMIN                            /00013301/ [Concomitant]
     Active Substance: PROCHLORPERAZINE MALEATE
     Dosage: 15 MG, UNK
     Route: 048
     Dates: start: 20140317, end: 20140323
  10. PACLITAXEL. [Concomitant]
     Active Substance: PACLITAXEL
     Dosage: 120 MG, UNK
     Route: 051
     Dates: start: 20140327, end: 20140327
  11. FENTOS [Concomitant]
     Active Substance: FENTANYL
     Dosage: 4 MG, UNK
     Route: 062
     Dates: start: 20140201, end: 20140322

REACTIONS (1)
  - Ovarian cancer [Fatal]
